FAERS Safety Report 4957230-X (Version None)
Quarter: 2006Q1

REPORT INFORMATION
  Report Type: 
  Country: None (occurrence: None)
  Receive Date: 20060329
  Receipt Date: 20060221
  Transmission Date: 20060701
  Serious: Yes (Other)
  Sender: FDA-Public Use
  Company Number: US-MERCK-0602USA05060

PATIENT
  Age: 82 Year
  Sex: Female

DRUGS (6)
  1. COZAAR [Suspect]
     Route: 048
     Dates: start: 20040101, end: 20060218
  2. ZETIA [Concomitant]
     Route: 048
  3. LIPITOR [Suspect]
     Route: 065
  4. ATENOLOL [Concomitant]
     Route: 065
  5. HYDROXYZINE HYDROCHLORIDE [Concomitant]
     Route: 065
  6. PLAVIX [Suspect]
     Route: 065

REACTIONS (3)
  - PRURITUS [None]
  - RASH ERYTHEMATOUS [None]
  - SKIN CANCER [None]
